FAERS Safety Report 25919687 (Version 1)
Quarter: 2025Q4

REPORT INFORMATION
  Report Type: Spontaneous
  Country: US (occurrence: US)
  Receive Date: 20251014
  Receipt Date: 20251014
  Transmission Date: 20260117
  Serious: No
  Sender: BIOGEN
  Company Number: US-BIOGEN-2025BI01326818

PATIENT

DRUGS (1)
  1. SPINRAZA [Suspect]
     Active Substance: NUSINERSEN
     Indication: Product used for unknown indication
     Route: 050

REACTIONS (3)
  - Musculoskeletal stiffness [Unknown]
  - Neck pain [Not Recovered/Not Resolved]
  - Procedural pain [Unknown]

NARRATIVE: CASE EVENT DATE: 20251003
